FAERS Safety Report 5828861-X (Version None)
Quarter: 2008Q3

REPORT INFORMATION
  Report Type: 
  Country: None (occurrence: None)
  Receive Date: 20080731
  Receipt Date: 20080728
  Transmission Date: 20090109
  Serious: Yes (Hospitalization)
  Sender: FDA-Public Use
  Company Number: FR-BRISTOL-MYERS SQUIBB COMPANY-14280598

PATIENT
  Age: 33 Year
  Sex: Female

DRUGS (5)
  1. ABILIFY [Suspect]
     Route: 048
     Dates: start: 20080517
  2. DEPAKOTE [Suspect]
     Dosage: UPTO 1500 MG DAILY:5 TABS/D THEN 6 TABS/D FROM THE 05-JUN-2008,REINTRODUCED AT 5 TABLETS DAILY.
     Route: 048
     Dates: start: 20080517
  3. OXAZEPAM [Suspect]
     Dosage: REDUCED TO 50 MG IN THE EVENING
     Route: 048
     Dates: start: 20080517
  4. TERCIAN [Suspect]
     Indication: SCHIZOPHRENIA
     Dosage: REDUCED TO HALF A TABLET IN THE EVENING.
     Route: 048
     Dates: start: 20080517
  5. IMOVANE [Suspect]
     Route: 048
     Dates: start: 20080517, end: 20080611

REACTIONS (3)
  - DISORIENTATION [None]
  - INCOHERENT [None]
  - LOCKED-IN SYNDROME [None]
